FAERS Safety Report 5377443-5 (Version None)
Quarter: 2007Q3

REPORT INFORMATION
  Report Type: 
  Country: None (occurrence: None)
  Receive Date: 20070703
  Receipt Date: 20070702
  Transmission Date: 20080115
  Serious: Yes (Death, Other)
  Sender: FDA-Public Use
  Company Number: US-ASTRAZENECA-2006UW23614

PATIENT
  Age: 505 Month
  Sex: Male
  Weight: 113.6 kg

DRUGS (1)
  1. SEROQUEL [Suspect]
     Route: 048
     Dates: start: 20030101, end: 20051201

REACTIONS (2)
  - DEATH [None]
  - PANCREATITIS [None]
